FAERS Safety Report 13328652 (Version 1)
Quarter: 2017Q1

REPORT INFORMATION
  Report Type: Spontaneous
  Country: US (occurrence: US)
  Receive Date: 20170313
  Receipt Date: 20170313
  Transmission Date: 20170428
  Serious: No
  Sender: FDA-Public Use
  Company Number: US-JNJFOC-20170120279

PATIENT
  Age: 37 Year
  Sex: Female
  Weight: 92.53 kg

DRUGS (4)
  1. PEPCID COMPLETE [Suspect]
     Active Substance: CALCIUM CARBONATE\FAMOTIDINE\MAGNESIUM HYDROXIDE
     Indication: DYSPEPSIA
     Dosage: 12 HOURS APART
     Route: 048
     Dates: start: 20170119
  2. PEPCID COMPLETE [Suspect]
     Active Substance: CALCIUM CARBONATE\FAMOTIDINE\MAGNESIUM HYDROXIDE
     Indication: GASTRIC INFECTION
     Dosage: 1 TABLET;
     Route: 048
  3. PEPCID COMPLETE [Suspect]
     Active Substance: CALCIUM CARBONATE\FAMOTIDINE\MAGNESIUM HYDROXIDE
     Indication: DYSPEPSIA
     Dosage: 1 TABLET;
     Route: 048
  4. PEPCID COMPLETE [Suspect]
     Active Substance: CALCIUM CARBONATE\FAMOTIDINE\MAGNESIUM HYDROXIDE
     Indication: GASTRIC INFECTION
     Dosage: 12 HOURS APART
     Route: 048
     Dates: start: 20170119

REACTIONS (4)
  - Product use issue [Recovered/Resolved]
  - Hypoaesthesia oral [Recovered/Resolved]
  - Product packaging issue [Unknown]
  - Off label use [Recovered/Resolved]

NARRATIVE: CASE EVENT DATE: 20170119
